FAERS Safety Report 7001011-2 (Version None)
Quarter: 2010Q3

REPORT INFORMATION
  Report Type: 
  Country: None (occurrence: None)
  Receive Date: 20100920
  Receipt Date: 20100723
  Transmission Date: 20110219
  Serious: Yes (Other)
  Sender: FDA-Public Use
  Company Number: US-ASTRAZENECA-2009UW14930

PATIENT
  Age: 51 Year
  Sex: Male
  Weight: 116.1 kg

DRUGS (7)
  1. SEROQUEL [Suspect]
     Indication: SCHIZOPHRENIA
     Route: 048
     Dates: start: 20040101
  2. SEROQUEL [Suspect]
     Indication: INSOMNIA
     Route: 048
     Dates: start: 20040101
  3. PERCOCET [Concomitant]
     Indication: PAIN
     Dosage: 5MG-325MG ONE TABLET BY MOUTH EVERY FOUR HOURS AS NEEDED FOR 4 DAYS
     Route: 048
     Dates: start: 20081101
  4. HYDROCHLOROTHIAZIDE [Concomitant]
     Route: 048
     Dates: start: 20081101
  5. ARIXTRA [Concomitant]
  6. LISINOPRIL [Concomitant]
     Route: 048
     Dates: start: 20081101
  7. ASPIRIN [Concomitant]
     Route: 048
     Dates: start: 20081101

REACTIONS (6)
  - BLOOD CHOLESTEROL INCREASED [None]
  - ERECTILE DYSFUNCTION [None]
  - GLUCOSE TOLERANCE IMPAIRED [None]
  - HYPERLIPIDAEMIA [None]
  - TYPE 2 DIABETES MELLITUS [None]
  - WEIGHT INCREASED [None]
